FAERS Safety Report 26205124 (Version 1)
Quarter: 2025Q4

REPORT INFORMATION
  Report Type: Spontaneous
  Country: US (occurrence: US)
  Receive Date: 20251228
  Receipt Date: 20251228
  Transmission Date: 20260117
  Serious: No
  Sender: ALEXION PHARMACEUTICALS
  Company Number: US-AstraZeneca-CH-01021885AP

PATIENT
  Sex: Female

DRUGS (1)
  1. BREZTRI [Suspect]
     Active Substance: BUDESONIDE\FORMOTEROL\GLYCOPYRROLATE
     Route: 065

REACTIONS (6)
  - Inappropriate schedule of product administration [Unknown]
  - Device issue [Unknown]
  - Tremor [Unknown]
  - Glassy eyes [Unknown]
  - Product dose omission issue [Unknown]
  - Incorrect dose administered [Unknown]
